FAERS Safety Report 21615098 (Version 1)
Quarter: 2022Q4

REPORT INFORMATION
  Report Type: Spontaneous
  Country: US (occurrence: US)
  Receive Date: 20221118
  Receipt Date: 20221118
  Transmission Date: 20230113
  Serious: Yes (Death)
  Sender: FDA-Public Use
  Company Number: US-PFIZER INC-202201307909

PATIENT
  Age: 90 Year
  Sex: Female
  Weight: 47.63 kg

DRUGS (1)
  1. VYNDAMAX [Suspect]
     Active Substance: TAFAMIDIS
     Indication: Cardiac amyloidosis
     Dosage: MAYBE 2-3 MONTHS ON VYNDAMAX

REACTIONS (1)
  - Death [Fatal]

NARRATIVE: CASE EVENT DATE: 20221114
